FAERS Safety Report 25599044 (Version 2)
Quarter: 2025Q3

REPORT INFORMATION
  Report Type: Spontaneous
  Country: US (occurrence: US)
  Receive Date: 20250724
  Receipt Date: 20250802
  Transmission Date: 20251020
  Serious: No
  Sender: ROCHE
  Company Number: US-ROCHE-10000344873

PATIENT
  Age: 44 Year
  Sex: Female
  Weight: 80.29 kg

DRUGS (12)
  1. OCREVUS [Suspect]
     Active Substance: OCRELIZUMAB
     Indication: Multiple sclerosis
     Route: 042
     Dates: start: 20250720
  2. MELOXICAM [Concomitant]
     Active Substance: MELOXICAM
     Indication: Inflammation
  3. LOSARTAN [Concomitant]
     Active Substance: LOSARTAN
     Indication: Blood pressure measurement
  4. PROPRANOLOL [Concomitant]
     Active Substance: PROPRANOLOL HYDROCHLORIDE
     Indication: Anxiety
  5. KESIMPTA [Concomitant]
     Active Substance: OFATUMUMAB
     Route: 058
  6. LYRICA [Concomitant]
     Active Substance: PREGABALIN
     Indication: Neuralgia
     Route: 048
  7. hydrocodone/Tylenol (Norco) [Concomitant]
     Indication: Pain
     Route: 048
  8. MEMANTINE [Concomitant]
     Active Substance: MEMANTINE
     Dosage: 10 MG/5 ML
     Route: 048
  9. BACLOFEN [Concomitant]
     Active Substance: BACLOFEN
     Route: 048
  10. SOLU-MEDROL [Concomitant]
     Active Substance: METHYLPREDNISOLONE SODIUM SUCCINATE
     Route: 042
  11. TYLENOL [Concomitant]
     Active Substance: ACETAMINOPHEN
     Route: 048
  12. BENADRYL [Concomitant]
     Active Substance: DIPHENHYDRAMINE HYDROCHLORIDE

REACTIONS (2)
  - Pruritus [Recovered/Resolved]
  - Rash [Recovered/Resolved]

NARRATIVE: CASE EVENT DATE: 20250720
